FAERS Safety Report 10997734 (Version 1)
Quarter: 2015Q2

REPORT INFORMATION
  Report Type: Spontaneous
  Country: US (occurrence: US)
  Receive Date: 20150408
  Receipt Date: 20150408
  Transmission Date: 20150821
  Serious: No
  Sender: FDA-Public Use
  Company Number: US-BANPHARM-20143035

PATIENT
  Age: 65 Year
  Sex: Male
  Weight: 94.35 kg

DRUGS (6)
  1. NATURE MADE VITAMIN E [Concomitant]
  2. NATURE MADE VITAMIN C [Concomitant]
  3. ALEVE [Suspect]
     Active Substance: NAPROXEN SODIUM
     Route: 048
     Dates: start: 2014
  4. NATURE MADE VITAMIN D3 [Concomitant]
  5. NATURE MADE FISH OIL [Concomitant]
  6. ALEVE [Suspect]
     Active Substance: NAPROXEN SODIUM
     Dosage: 1 DF, PRN,
     Route: 048
     Dates: start: 2014, end: 20140828

REACTIONS (3)
  - Expired product administered [Unknown]
  - Incorrect drug administration rate [Unknown]
  - Drug ineffective [Unknown]

NARRATIVE: CASE EVENT DATE: 2014
